FAERS Safety Report 20903124 (Version 1)
Quarter: 2022Q2

REPORT INFORMATION
  Report Type: Other
  Country: None (occurrence: US)
  Receive Date: 20220601
  Receipt Date: 20220601
  Transmission Date: 20220721
  Serious: Yes (Life-Threatening, Hospitalization, Other)
  Sender: FDA-Public Use
  Company Number: US-MLMSERVICE-20220510-3548753-1

PATIENT
  Age: 17 Year
  Sex: Male

DRUGS (4)
  1. NITROUS OXIDE [Suspect]
     Active Substance: NITROUS OXIDE
     Indication: Anaesthesia
  2. SEVOFLURANE [Suspect]
     Active Substance: SEVOFLURANE
  3. PROPOFOL [Suspect]
     Active Substance: PROPOFOL
     Route: 042
  4. FENTANYL [Suspect]
     Active Substance: FENTANYL
     Route: 042

REACTIONS (1)
  - Respiratory depression [Recovered/Resolved]
